FAERS Safety Report 14546052 (Version 1)
Quarter: 2018Q1

REPORT INFORMATION
  Report Type: Spontaneous
  Country: US (occurrence: US)
  Receive Date: 20180219
  Receipt Date: 20180219
  Transmission Date: 20180509
  Serious: No
  Sender: FDA-Public Use
  Company Number: US-LUNDBECK-DKLU2042033

PATIENT
  Age: 21 Year
  Sex: Female

DRUGS (1)
  1. NORTHERA [Suspect]
     Active Substance: DROXIDOPA
     Indication: AUTONOMIC NEUROPATHY
     Dosage: SCHEDULE C (TITRATING)
     Route: 048
     Dates: start: 20171215

REACTIONS (3)
  - Blood pressure decreased [Unknown]
  - Cough [Unknown]
  - Heart rate increased [Unknown]

NARRATIVE: CASE EVENT DATE: 20171230
